FAERS Safety Report 13145945 (Version 3)
Quarter: 2017Q3

REPORT INFORMATION
  Report Type: Report from Study
  Country: US (occurrence: US)
  Receive Date: 20170124
  Receipt Date: 20170728
  Transmission Date: 20171127
  Serious: No
  Sender: FDA-Public Use
  Company Number: US-AMGEN-USASL2017007428

PATIENT
  Age: 75 Year
  Sex: Male

DRUGS (4)
  1. PAPAVERINE HCL [Concomitant]
     Dosage: 30 MG, UNK
  2. PHENTOLAMINE [Concomitant]
     Active Substance: PHENTOLAMINE
     Dosage: 1 MG, UNK
  3. REPATHA [Suspect]
     Active Substance: EVOLOCUMAB
     Indication: LOW DENSITY LIPOPROTEIN ABNORMAL
     Dosage: 140 MG, Q2WK
     Route: 065
  4. REPATHA [Suspect]
     Active Substance: EVOLOCUMAB
     Indication: BLOOD CHOLESTEROL INCREASED

REACTIONS (1)
  - Low density lipoprotein increased [Unknown]
